FAERS Safety Report 20623787 (Version 1)
Quarter: 2022Q1

REPORT INFORMATION
  Report Type: Spontaneous
  Country: CA (occurrence: CA)
  Receive Date: 20220322
  Receipt Date: 20220322
  Transmission Date: 20220423
  Serious: Yes (Other)
  Sender: FDA-Public Use
  Company Number: CA-009507513-2203CAN005659

PATIENT
  Age: 53 Year
  Sex: Male

DRUGS (4)
  1. TEMODAL [Suspect]
     Active Substance: TEMOZOLOMIDE
     Indication: Product used for unknown indication
     Dosage: UNK
     Route: 065
  2. SUTENT [Suspect]
     Active Substance: SUNITINIB MALATE
     Indication: Pancreatic neuroendocrine tumour
     Dosage: 25.0 MILLIGRAM; 1 EVERY 28 DAYS
     Route: 048
  3. SUTENT [Suspect]
     Active Substance: SUNITINIB MALATE
     Indication: Pancreatic neuroendocrine tumour
     Dosage: 50 MILLIGRAM
     Route: 048
  4. XELODA [Suspect]
     Active Substance: CAPECITABINE
     Indication: Product used for unknown indication
     Dosage: UNK
     Route: 048

REACTIONS (1)
  - Toxicity to various agents [Unknown]
